FAERS Safety Report 19052901 (Version 1)
Quarter: 2021Q1

REPORT INFORMATION
  Report Type: Report from Study
  Country: BR (occurrence: BR)
  Receive Date: 20210325
  Receipt Date: 20210325
  Transmission Date: 20210420
  Serious: Yes (Other)
  Sender: FDA-Public Use
  Company Number: BR-ACCORD-213438

PATIENT
  Age: 12 Year
  Sex: Male

DRUGS (6)
  1. CAPTOPRIL. [Concomitant]
     Active Substance: CAPTOPRIL
  2. ACICLOVIR [Concomitant]
     Active Substance: ACYCLOVIR
  3. CICLOSPORIN [Suspect]
     Active Substance: CYCLOSPORINE
     Indication: PRODUCT USED FOR UNKNOWN INDICATION
  4. AMLODIPINE [Suspect]
     Active Substance: AMLODIPINE BESYLATE
     Indication: PRODUCT USED FOR UNKNOWN INDICATION
  5. SULFAMETHOXAZOLE/TRIMETHOPRIM [Concomitant]
     Active Substance: SULFAMETHOXAZOLE\TRIMETHOPRIM
  6. URSODEOXYCHOLATE SODIUM/URSODEOXYCHOLIC ACID [Concomitant]
     Active Substance: URSODIOL

REACTIONS (2)
  - Gingival hypertrophy [Unknown]
  - Pyogenic granuloma [Unknown]
